FAERS Safety Report 25137591 (Version 1)
Quarter: 2025Q1

REPORT INFORMATION
  Report Type: Spontaneous
  Country: US (occurrence: US)
  Receive Date: 20250329
  Receipt Date: 20250329
  Transmission Date: 20250409
  Serious: No
  Sender: ABBVIE
  Company Number: US-ABBVIE-6193734

PATIENT
  Age: 66 Year
  Sex: Male

DRUGS (1)
  1. VUITY [Suspect]
     Active Substance: PILOCARPINE HYDROCHLORIDE
     Indication: Presbyopia
     Route: 047
     Dates: start: 20220411

REACTIONS (4)
  - Macular hole [Not Recovered/Not Resolved]
  - Epiretinal membrane [Unknown]
  - Eye disorder [Unknown]
  - Vitreoretinal traction syndrome [Unknown]

NARRATIVE: CASE EVENT DATE: 20240101
